FAERS Safety Report 8862982 (Version 1)
Quarter: 2012Q4

REPORT INFORMATION
  Report Type: 
  Country: US (occurrence: US)
  Receive Date: 20121026
  Receipt Date: 20121026
  Transmission Date: 20130627
  Serious: No
  Sender: FDA-Public Use
  Company Number: US-ALLERGAN-1203563US

PATIENT
  Age: 69 Year
  Sex: Female

DRUGS (4)
  1. LUMIGAN [Suspect]
     Indication: GLAUCOMA
     Dosage: 2 Gtt, bid
     Route: 047
     Dates: start: 201112
  2. ALPHAGAN P [Suspect]
     Indication: GLAUCOMA
     Dosage: 2 Gtt, bid
     Route: 047
     Dates: start: 201202
  3. REFRESH OPTIVE ADVANCED [Suspect]
     Indication: DRY EYES
     Dosage: 2 Gtt, prn
     Route: 047
     Dates: start: 201202
  4. SYSTANE [Concomitant]
     Indication: DRY EYES
     Dosage: 2 Gtt, bid
     Route: 047
     Dates: end: 20120313

REACTIONS (1)
  - Eye irritation [Not Recovered/Not Resolved]
